FAERS Safety Report 7993731-8 (Version None)
Quarter: 2011Q4

REPORT INFORMATION
  Report Type: 
  Country: None (occurrence: None)
  Receive Date: 20111220
  Receipt Date: 20111215
  Transmission Date: 20120403
  Serious: Yes (Hospitalization)
  Sender: FDA-Public Use
  Company Number: ES-BRISTOL-MYERS SQUIBB COMPANY-16296956

PATIENT
  Age: 3 Decade
  Sex: Male

DRUGS (1)
  1. NULOJIX [Suspect]

REACTIONS (1)
  - HAEMOLYTIC URAEMIC SYNDROME [None]
